FAERS Safety Report 20021861 (Version 1)
Quarter: 2021Q4

REPORT INFORMATION
  Report Type: Spontaneous
  Country: US (occurrence: US)
  Receive Date: 20211102
  Receipt Date: 20211102
  Transmission Date: 20220303
  Serious: No
  Sender: FDA-Public Use
  Company Number: US-JNJFOC-20211009510

PATIENT
  Sex: Male
  Weight: 72.640 kg

DRUGS (3)
  1. INVEGA [Suspect]
     Active Substance: PALIPERIDONE
     Indication: Schizophrenia
     Route: 048
     Dates: start: 2016
  2. DRONABINOL [Concomitant]
     Active Substance: DRONABINOL
     Indication: Nausea
  3. AMBIEN [Concomitant]
     Active Substance: ZOLPIDEM TARTRATE
     Indication: Sleep disorder therapy

REACTIONS (6)
  - Anorgasmia [Unknown]
  - Depressed mood [Unknown]
  - Nausea [Unknown]
  - Retching [Unknown]
  - Inappropriate schedule of product administration [Unknown]
  - Off label use [Unknown]

NARRATIVE: CASE EVENT DATE: 20160101
